FAERS Safety Report 8824035 (Version 2)
Quarter: 2012Q4

REPORT INFORMATION
  Report Type: 
  Country: US (occurrence: US)
  Receive Date: 20121003
  Receipt Date: 20121009
  Transmission Date: 20130627
  Serious: Yes (Hospitalization)
  Sender: FDA-Public Use
  Company Number: US-PFIZER INC-2012244104

PATIENT

DRUGS (2)
  1. ZOLOFT [Suspect]
     Dosage: UNK
  2. ST. JOHN^S WORT [Interacting]
     Dosage: UNK

REACTIONS (6)
  - Drug interaction [Unknown]
  - Irritability [Unknown]
  - Feeling abnormal [Unknown]
  - Judgement impaired [Unknown]
  - Anger [Unknown]
  - Insomnia [Unknown]
